FAERS Safety Report 15390439 (Version 1)
Quarter: 2018Q3

REPORT INFORMATION
  Report Type: Report from Study
  Country: FR (occurrence: FR)
  Receive Date: 20180917
  Receipt Date: 20180917
  Transmission Date: 20181010
  Serious: Yes (Other)
  Sender: FDA-Public Use
  Company Number: FR-ROCHE-2185584

PATIENT

DRUGS (2)
  1. RITUXIMAB. [Suspect]
     Active Substance: RITUXIMAB
     Indication: MALIGNANT LYMPHOID NEOPLASM
     Dosage: MAINTENANCE THERAPY AT 375 MG/M2 IV EVERY 2 MONTHS FOR 2 YEARS
     Route: 042
  2. BENDAMUSTINE [Suspect]
     Active Substance: BENDAMUSTINE
     Indication: MALIGNANT LYMPHOID NEOPLASM
     Dosage: 2 COURSES
     Route: 065

REACTIONS (11)
  - Leukopenia [Unknown]
  - Fatigue [Unknown]
  - Gastrointestinal disorder [Unknown]
  - Neoplasm [Unknown]
  - Atrial fibrillation [Unknown]
  - Lymphopenia [Unknown]
  - Asthenia [Unknown]
  - Infection [Unknown]
  - Lung infection [Unknown]
  - Neutropenia [Unknown]
  - Febrile neutropenia [Unknown]
